FAERS Safety Report 12136646 (Version 1)
Quarter: 2016Q1

REPORT INFORMATION
  Report Type: Spontaneous
  Country: US (occurrence: None)
  Receive Date: 20160301
  Receipt Date: 20160301
  Transmission Date: 20160526
  Serious: Yes (Death)
  Sender: FDA-Public Use
  Company Number: None

PATIENT
  Age: 60 Year
  Sex: Female

DRUGS (2)
  1. TEMOZOLAMIDE 180 MG SANDOZ [Suspect]
     Active Substance: TEMOZOLOMIDE
     Route: 048
     Dates: start: 20150320, end: 20151223
  2. TEMOZOLAMIDE 140 MG SANDOZ [Suspect]
     Active Substance: TEMOZOLOMIDE
     Route: 048
     Dates: start: 20150320, end: 20151223

REACTIONS (2)
  - Sepsis [None]
  - Nausea [None]

NARRATIVE: CASE EVENT DATE: 20151223
